FAERS Safety Report 8411466-4 (Version None)
Quarter: 2012Q2

REPORT INFORMATION
  Report Type: 
  Country: None (occurrence: None)
  Receive Date: 20120605
  Receipt Date: 20120508
  Transmission Date: 20120825
  Serious: No
  Sender: FDA-Public Use
  Company Number: US-AMGEN-USASP2012029084

PATIENT
  Sex: Female

DRUGS (13)
  1. CRANBERRY                          /01512301/ [Concomitant]
     Dosage: UNK MG, UNK
  2. METFORMIN HCL [Concomitant]
     Dosage: UNK MG, UNK
  3. CINNAMON                           /01647501/ [Concomitant]
  4. MULTI-VITAMINS [Concomitant]
     Dosage: UNK MG, UNK
  5. ENBREL [Suspect]
     Indication: PSORIATIC ARTHROPATHY
     Dosage: 50 MG, QWK
     Dates: start: 20111201
  6. FISH OIL [Concomitant]
     Dosage: UNK MG, UNK
  7. CALCIUM PLUS VITAMIN D [Concomitant]
     Dosage: UNK MG, UNK
  8. ASPIRIN [Concomitant]
     Dosage: UNK MG, UNK
  9. VITAMIN D                          /00318501/ [Concomitant]
     Dosage: UNK IU/KG, UNK
  10. PRAVASTATIN SODIUM [Concomitant]
     Dosage: UNK MG, UNK
  11. TOPROL-XL [Concomitant]
     Dosage: UNK MG, UNK
  12. GLIPIZIDE [Concomitant]
     Dosage: UNK MG, UNK
  13. MAGNESIUM [Concomitant]
     Dosage: UNK MG, UNK

REACTIONS (1)
  - BRONCHITIS [None]
